FAERS Safety Report 9411550 (Version 3)
Quarter: 2013Q3

REPORT INFORMATION
  Report Type: Spontaneous
  Country: US (occurrence: US)
  Receive Date: 20130722
  Receipt Date: 20130819
  Transmission Date: 20140515
  Serious: Yes (Disabling)
  Sender: FDA-Public Use
  Company Number: US-ROCHE-1251239

PATIENT
  Sex: Male

DRUGS (5)
  1. XOLAIR [Suspect]
     Indication: ASTHMA
     Route: 058
     Dates: start: 20130101, end: 20130805
  2. XOLAIR [Suspect]
     Indication: ASTHMA
     Route: 065
     Dates: start: 20120928, end: 20130523
  3. ADVAIR [Concomitant]
     Indication: ASTHMA
     Dosage: 500/5
     Route: 065
  4. SINGULAIR [Concomitant]
     Indication: ASTHMA
     Route: 048
  5. ZETONNA [Concomitant]
     Indication: RHINITIS ALLERGIC
     Dosage: 1PPM
     Route: 065

REACTIONS (1)
  - Ear infection [Recovered/Resolved]
